FAERS Safety Report 5859578-3 (Version None)
Quarter: 2008Q3

REPORT INFORMATION
  Report Type: 
  Country: None (occurrence: None)
  Receive Date: 20080827
  Receipt Date: 20080821
  Transmission Date: 20090109
  Serious: Yes (Hospitalization)
  Sender: FDA-Public Use
  Company Number: B0534404A

PATIENT
  Age: 68 Year
  Sex: Female

DRUGS (2)
  1. ELONTRIL [Suspect]
     Indication: DEPRESSION
     Dosage: 300MG PER DAY
     Route: 048
     Dates: start: 20080719, end: 20080809
  2. AMITRIPTYLINE HCL [Concomitant]
     Indication: DEPRESSION
     Dosage: 25MG PER DAY
     Route: 048
     Dates: start: 20000101, end: 20000808

REACTIONS (3)
  - CEREBRAL ATROPHY [None]
  - HYPERTHERMIA MALIGNANT [None]
  - MUSCLE CONTRACTIONS INVOLUNTARY [None]
